FAERS Safety Report 6129801-9 (Version None)
Quarter: 2009Q1

REPORT INFORMATION
  Report Type: 
  Country: None (occurrence: None)
  Receive Date: 20090324
  Receipt Date: 20090313
  Transmission Date: 20090719
  Serious: Yes (Hospitalization)
  Sender: FDA-Public Use
  Company Number: NL-SANOFI-SYNTHELABO-F01200900265

PATIENT
  Sex: Male

DRUGS (5)
  1. ALPRAZOLAM [Concomitant]
     Dosage: UNK
  2. BARBASALATE CALCIUM [Concomitant]
     Dosage: UNK
  3. IRBESARTAN [Concomitant]
     Dosage: UNK
  4. BISOPROLOL FUMARATE [Concomitant]
     Dosage: UNK
  5. ELIGARD [Suspect]
     Indication: PROSTATE CANCER
     Dosage: 22.5 NG
     Route: 058
     Dates: start: 20071227, end: 20071227

REACTIONS (2)
  - ABDOMINAL PAIN [None]
  - DYSPNOEA [None]
